FAERS Safety Report 25114984 (Version 1)
Quarter: 2025Q1

REPORT INFORMATION
  Report Type: Spontaneous
  Country: FR (occurrence: FR)
  Receive Date: 20250324
  Receipt Date: 20250324
  Transmission Date: 20250409
  Serious: Yes (Other)
  Sender: MYLAN
  Company Number: None

PATIENT
  Age: 33 Year
  Sex: Female

DRUGS (1)
  1. TRAMADOL [Suspect]
     Active Substance: TRAMADOL
     Indication: Product used for unknown indication
     Dosage: 750 MILLIGRAM, QD (750 MG/DAY ON AVERAGE)
     Dates: start: 2024

REACTIONS (2)
  - Drug abuse [Not Recovered/Not Resolved]
  - Illicit prescription attainment [Not Recovered/Not Resolved]

NARRATIVE: CASE EVENT DATE: 20240101
